FAERS Safety Report 21513844 (Version 2)
Quarter: 2023Q2

REPORT INFORMATION
  Report Type: Spontaneous
  Country: US (occurrence: None)
  Receive Date: 20221027
  Receipt Date: 20230523
  Transmission Date: 20230721
  Serious: Yes (Other)
  Sender: FDA-Public Use
  Company Number: 2022A351255

PATIENT
  Age: 61 Year
  Sex: Male
  Weight: 94.3 kg

DRUGS (89)
  1. NEXIUM [Suspect]
     Active Substance: ESOMEPRAZOLE MAGNESIUM
     Route: 048
     Dates: start: 1995
  2. NEXIUM [Suspect]
     Active Substance: ESOMEPRAZOLE MAGNESIUM
     Route: 048
     Dates: start: 20050531, end: 20051115
  3. PRILOSEC [Suspect]
     Active Substance: OMEPRAZOLE MAGNESIUM
     Indication: Gastrooesophageal reflux disease
     Route: 048
     Dates: start: 1995
  4. PRILOSEC [Suspect]
     Active Substance: OMEPRAZOLE MAGNESIUM
     Indication: Gastrooesophageal reflux disease
     Dosage: GENERIC
     Dates: start: 20041104, end: 20181214
  5. PRILOSEC [Suspect]
     Active Substance: OMEPRAZOLE MAGNESIUM
     Indication: Gastrooesophageal reflux disease
     Route: 048
     Dates: start: 19951201
  6. PREVACID [Suspect]
     Active Substance: LANSOPRAZOLE
     Indication: Gastrooesophageal reflux disease
     Dates: start: 1995
  7. PREVACID [Suspect]
     Active Substance: LANSOPRAZOLE
     Indication: Gastrooesophageal reflux disease
     Dates: start: 19951201, end: 20080611
  8. PROTONIX [Suspect]
     Active Substance: PANTOPRAZOLE SODIUM
     Indication: Gastrooesophageal reflux disease
     Dates: start: 1995
  9. PROTONIX [Suspect]
     Active Substance: PANTOPRAZOLE SODIUM
     Indication: Gastrooesophageal reflux disease
     Dates: start: 20060403
  10. LOSARTAN [Concomitant]
     Active Substance: LOSARTAN
     Indication: Hypertension
     Dates: start: 20171116
  11. TRAMADOL [Concomitant]
     Active Substance: TRAMADOL
     Indication: Pain
  12. ALLOPURINOL [Concomitant]
     Active Substance: ALLOPURINOL
     Indication: Blood uric acid
     Dates: start: 20180418
  13. SIMVASTATIN [Concomitant]
     Active Substance: SIMVASTATIN
     Indication: Blood cholesterol increased
     Dates: start: 20110315
  14. MOXIFLOXACIN [Concomitant]
     Active Substance: MOXIFLOXACIN
     Indication: Infection
     Dates: start: 20210527
  15. LISINOPRIL [Concomitant]
     Active Substance: LISINOPRIL
     Indication: Hypertension
     Dates: start: 20041105, end: 20181103
  16. SPIRONOLACTONE [Concomitant]
     Active Substance: SPIRONOLACTONE
     Indication: Nephropathy
     Dates: start: 20080529, end: 20140221
  17. TICLOPIDINE [Concomitant]
     Active Substance: TICLOPIDINE
     Indication: Cerebrovascular accident
     Dates: start: 20061031, end: 20071101
  18. PRAVASTATIN [Concomitant]
     Active Substance: PRAVASTATIN
     Indication: Blood cholesterol increased
     Dates: start: 20120620, end: 20140221
  19. AMOXICILLIN [Concomitant]
     Active Substance: AMOXICILLIN
     Indication: Infection
     Dates: start: 20080904
  20. AMOXICILLIN [Concomitant]
     Active Substance: AMOXICILLIN
     Indication: Infection
     Dates: start: 20081027
  21. FAMOTIDINE [Concomitant]
     Active Substance: FAMOTIDINE
     Dates: start: 20220408
  22. ZANTAC [Concomitant]
     Active Substance: RANITIDINE HYDROCHLORIDE
     Dates: start: 20181212
  23. ZANTAC [Concomitant]
     Active Substance: RANITIDINE HYDROCHLORIDE
     Dates: start: 20181214
  24. MIRTAZAPINE [Concomitant]
     Active Substance: MIRTAZAPINE
     Dates: start: 20181212
  25. MIRTAZAPINE [Concomitant]
     Active Substance: MIRTAZAPINE
     Dates: start: 20181214
  26. FINASTERIDE [Concomitant]
     Active Substance: FINASTERIDE
     Dates: start: 20181212
  27. FINASTERIDE [Concomitant]
     Active Substance: FINASTERIDE
     Dates: start: 20181214
  28. LANCET [Concomitant]
     Dates: start: 20181212
  29. LANCET [Concomitant]
     Dates: start: 20181214
  30. TAMSULOSIN [Concomitant]
     Active Substance: TAMSULOSIN
     Dates: start: 20181212
  31. TAMSULOSIN [Concomitant]
     Active Substance: TAMSULOSIN
     Dates: start: 20181214
  32. PREGABALIN [Concomitant]
     Active Substance: PREGABALIN
     Dates: start: 20181212
  33. PREGABALIN [Concomitant]
     Active Substance: PREGABALIN
     Dates: start: 20181214
  34. CARVEDILOL [Concomitant]
     Active Substance: CARVEDILOL
     Dates: start: 20181212
  35. CARVEDILOL [Concomitant]
     Active Substance: CARVEDILOL
     Dates: start: 20181214
  36. AMLODIPINE [Concomitant]
     Active Substance: AMLODIPINE BESYLATE
     Dates: start: 20181212
  37. AMLODIPINE [Concomitant]
     Active Substance: AMLODIPINE BESYLATE
     Dates: start: 20181214
  38. SERTRALINE [Concomitant]
     Active Substance: SERTRALINE HYDROCHLORIDE
     Dates: start: 20181212
  39. SERTRALINE [Concomitant]
     Active Substance: SERTRALINE HYDROCHLORIDE
     Dates: start: 20181214
  40. HYDROCORTISONE [Concomitant]
     Active Substance: HYDROCORTISONE
     Dates: start: 20181212
  41. HYDROCORTISONE [Concomitant]
     Active Substance: HYDROCORTISONE
     Dates: start: 20181214
  42. TERAZOSIN [Concomitant]
     Active Substance: TERAZOSIN HYDROCHLORIDE
     Dates: start: 20181212
  43. TERAZOSIN [Concomitant]
     Active Substance: TERAZOSIN HYDROCHLORIDE
     Dates: start: 20181214
  44. HYDROCHLOROTHIAZIDE [Concomitant]
     Active Substance: HYDROCHLOROTHIAZIDE
     Dates: start: 20181212
  45. HYDROCHLOROTHIAZIDE [Concomitant]
     Active Substance: HYDROCHLOROTHIAZIDE
     Dates: start: 20181214
  46. METFORMIN [Concomitant]
     Active Substance: METFORMIN HYDROCHLORIDE
     Dates: start: 20181212
  47. METFORMIN [Concomitant]
     Active Substance: METFORMIN HYDROCHLORIDE
     Dates: start: 20181214
  48. CLONIDINE [Concomitant]
     Active Substance: CLONIDINE
     Dates: start: 20181212
  49. CLONIDINE [Concomitant]
     Active Substance: CLONIDINE
     Dates: start: 20181214
  50. GABAPENTIN [Concomitant]
     Active Substance: GABAPENTIN
     Dates: start: 20181212
  51. GABAPENTIN [Concomitant]
     Active Substance: GABAPENTIN
     Dates: start: 20181214
  52. CHLORHEXIDINE [Concomitant]
     Active Substance: CHLORHEXIDINE
     Dates: start: 20181212
  53. CHLORHEXIDINE [Concomitant]
     Active Substance: CHLORHEXIDINE
     Dates: start: 20181214
  54. TICLOPIDINE/GINKGO BILOBA [Concomitant]
     Dates: start: 20181212
  55. TICLOPIDINE/GINKGO BILOBA [Concomitant]
     Dates: start: 20181214
  56. RISPERDAL [Concomitant]
     Active Substance: RISPERIDONE
     Dates: start: 20181212
  57. RISPERDAL [Concomitant]
     Active Substance: RISPERIDONE
     Dates: start: 20181214
  58. KLONOPIN [Concomitant]
     Active Substance: CLONAZEPAM
     Dates: start: 20181212
  59. KLONOPIN [Concomitant]
     Active Substance: CLONAZEPAM
     Dates: start: 20181214
  60. ZOLOFT [Concomitant]
     Active Substance: SERTRALINE HYDROCHLORIDE
     Dates: start: 20181212
  61. ZOLOFT [Concomitant]
     Active Substance: SERTRALINE HYDROCHLORIDE
     Dates: start: 20181214
  62. SINGULAIR [Concomitant]
     Active Substance: MONTELUKAST SODIUM
     Dates: start: 20181212
  63. SINGULAIR [Concomitant]
     Active Substance: MONTELUKAST SODIUM
     Dates: start: 20181214
  64. PERIACTIN [Concomitant]
     Active Substance: CYPROHEPTADINE HYDROCHLORIDE
     Dates: start: 20181212
  65. PERIACTIN [Concomitant]
     Active Substance: CYPROHEPTADINE HYDROCHLORIDE
     Dates: start: 20181214
  66. TRICOR [Concomitant]
     Active Substance: FENOFIBRATE
     Dates: start: 20181212
  67. TRICOR [Concomitant]
     Active Substance: FENOFIBRATE
     Dates: start: 20181214
  68. FLOMAX [Concomitant]
     Active Substance: TAMSULOSIN HYDROCHLORIDE
     Dates: start: 20181212
  69. FLOMAX [Concomitant]
     Active Substance: TAMSULOSIN HYDROCHLORIDE
     Dates: start: 20181214
  70. POTASSIUM CHLORIDE [Concomitant]
     Active Substance: POTASSIUM CHLORIDE
     Dates: start: 20181212
  71. POTASSIUM CHLORIDE [Concomitant]
     Active Substance: POTASSIUM CHLORIDE
     Dates: start: 20181214
  72. COREG [Concomitant]
     Active Substance: CARVEDILOL
     Dates: start: 20181212
  73. COREG [Concomitant]
     Active Substance: CARVEDILOL
     Dates: start: 20181214
  74. ASPIRIN [Concomitant]
     Active Substance: ASPIRIN
     Dates: start: 20181212
  75. ASPIRIN [Concomitant]
     Active Substance: ASPIRIN
     Dates: start: 20181214
  76. AGGRENOX [Concomitant]
     Active Substance: ASPIRIN\DIPYRIDAMOLE
     Dates: start: 20181212
  77. AGGRENOX [Concomitant]
     Active Substance: ASPIRIN\DIPYRIDAMOLE
     Dates: start: 20181214
  78. PLAVIX [Concomitant]
     Active Substance: CLOPIDOGREL BISULFATE
     Dates: start: 20181212
  79. PLAVIX [Concomitant]
     Active Substance: CLOPIDOGREL BISULFATE
     Dates: start: 20181214
  80. LEVEMIR [Concomitant]
     Active Substance: INSULIN DETEMIR
     Dates: start: 20181212
  81. LEVEMIR [Concomitant]
     Active Substance: INSULIN DETEMIR
     Dates: start: 20181214
  82. ROPINIROLE [Concomitant]
     Active Substance: ROPINIROLE
     Dates: start: 20181212
  83. ROPINIROLE [Concomitant]
     Active Substance: ROPINIROLE
     Dates: start: 20181214
  84. TRULICITY [Concomitant]
     Active Substance: DULAGLUTIDE
     Dates: start: 20181212
  85. TRULICITY [Concomitant]
     Active Substance: DULAGLUTIDE
     Dates: start: 20181214
  86. NEURONTIN [Concomitant]
     Active Substance: GABAPENTIN
     Dates: start: 20181212
  87. NEURONTIN [Concomitant]
     Active Substance: GABAPENTIN
     Dates: start: 20181214
  88. NYSTATIN [Concomitant]
     Active Substance: NYSTATIN
     Dates: start: 20181212
  89. NYSTATIN [Concomitant]
     Active Substance: NYSTATIN
     Dates: start: 20181214

REACTIONS (4)
  - Chronic kidney disease [Not Recovered/Not Resolved]
  - Renal failure [Not Recovered/Not Resolved]
  - Chronic kidney disease-mineral and bone disorder [Not Recovered/Not Resolved]
  - Rebound acid hypersecretion [Unknown]

NARRATIVE: CASE EVENT DATE: 20080101
